FAERS Safety Report 24320608 (Version 1)
Quarter: 2024Q3

REPORT INFORMATION
  Report Type: Other
  Country: GB (occurrence: GB)
  Receive Date: 20240915
  Receipt Date: 20240915
  Transmission Date: 20241017
  Serious: Yes (Other)
  Sender: GLENMARK
  Company Number: None

PATIENT

DRUGS (3)
  1. ROSUVASTATIN CALCIUM [Interacting]
     Active Substance: ROSUVASTATIN CALCIUM
     Indication: Hypercholesterolaemia
     Dosage: 5 MILLIGRAM
     Route: 065
     Dates: start: 20240830, end: 20240903
  2. FLUOXETINE [Interacting]
     Active Substance: FLUOXETINE HYDROCHLORIDE
     Indication: Adjustment disorder with depressed mood
     Dosage: UNK
     Route: 065
  3. RAMIPRIL [Concomitant]
     Active Substance: RAMIPRIL
     Indication: Hypertension
     Dosage: UNK
     Route: 065

REACTIONS (15)
  - Dyspepsia [Recovered/Resolved with Sequelae]
  - Dizziness postural [Recovered/Resolved]
  - Tremor [Recovered/Resolved]
  - Paraesthesia [Recovering/Resolving]
  - Electric shock sensation [Recovering/Resolving]
  - Nervousness [Not Recovered/Not Resolved]
  - Hot flush [Recovering/Resolving]
  - Oesophagitis [Recovering/Resolving]
  - Palpitations [Recovering/Resolving]
  - Decreased appetite [Recovering/Resolving]
  - Constipation [Recovering/Resolving]
  - Arthralgia [Recovering/Resolving]
  - Insomnia [Recovering/Resolving]
  - Influenza like illness [Unknown]
  - Drug interaction [Unknown]

NARRATIVE: CASE EVENT DATE: 20240830
